FAERS Safety Report 13801914 (Version 2)
Quarter: 2017Q3

REPORT INFORMATION
  Report Type: Spontaneous
  Country: ES (occurrence: ES)
  Receive Date: 20170727
  Receipt Date: 20170803
  Transmission Date: 20171127
  Serious: Yes (Hospitalization)
  Sender: FDA-Public Use
  Company Number: ES-TEVA-790240ROM

PATIENT
  Age: 56 Year
  Sex: Male
  Weight: 63 kg

DRUGS (3)
  1. PEGYLATED INTERFERON NOS [Suspect]
     Active Substance: PEGINTERFERON ALFA-2A OR PEGINTERFERON ALFA-2B OR PEGINTERFERON BETA-1A OR PEGINTERFERON LAMBDA-1A
     Indication: LIVER DISORDER
     Dosage: 2 TO 180 MICROG/WEEK
     Route: 065
  2. TELAPREVIR [Suspect]
     Active Substance: TELAPREVIR
     Indication: LIVER DISORDER
     Route: 065
  3. RIBAVIRIN. [Suspect]
     Active Substance: RIBAVIRIN
     Indication: LIVER DISORDER
     Route: 065

REACTIONS (1)
  - Bone marrow failure [Recovered/Resolved]
